FAERS Safety Report 13976448 (Version 1)
Quarter: 2017Q3

REPORT INFORMATION
  Report Type: Report from Study
  Country: US (occurrence: US)
  Receive Date: 20170915
  Receipt Date: 20170915
  Transmission Date: 20171128
  Serious: Yes (Hospitalization)
  Sender: FDA-Public Use
  Company Number: US-EISAI MEDICAL RESEARCH-EC-2017-028555

PATIENT
  Sex: Male
  Weight: 61.24 kg

DRUGS (4)
  1. LENVIMA [Suspect]
     Active Substance: LENVATINIB
     Indication: RENAL CELL CARCINOMA
     Route: 048
     Dates: start: 201706, end: 201706
  2. AFINITOR [Concomitant]
     Active Substance: EVEROLIMUS
  3. LENVIMA [Suspect]
     Active Substance: LENVATINIB
     Route: 048
     Dates: start: 201706, end: 2017
  4. LENVIMA [Suspect]
     Active Substance: LENVATINIB
     Route: 048
     Dates: start: 2017, end: 20170905

REACTIONS (3)
  - Gallbladder disorder [Unknown]
  - Confusional state [Unknown]
  - Vomiting [Unknown]

NARRATIVE: CASE EVENT DATE: 2017
